FAERS Safety Report 20667136 (Version 1)
Quarter: 2022Q2

REPORT INFORMATION
  Report Type: Spontaneous
  Country: US (occurrence: US)
  Receive Date: 20220404
  Receipt Date: 20220404
  Transmission Date: 20220720
  Serious: No
  Sender: FDA-Public Use
  Company Number: US-drreddys-SPO/USA/22/0148266

PATIENT
  Age: 36 Year
  Sex: Male

DRUGS (1)
  1. ACCUTANE [Suspect]
     Active Substance: ISOTRETINOIN
     Indication: Product used for unknown indication
     Dosage: RMA ISSUE DATE: 09 FEBRUARY 2022 03:23:47 PM?RMA ISSUE DATE: 06 JANUARY 2022 04:42:05 PM

REACTIONS (1)
  - Adverse drug reaction [Unknown]
